FAERS Safety Report 6960104-6 (Version None)
Quarter: 2010Q3

REPORT INFORMATION
  Report Type: 
  Country: None (occurrence: None)
  Receive Date: 20100901
  Receipt Date: 20100820
  Transmission Date: 20110219
  Serious: Yes (Hospitalization, Other)
  Sender: FDA-Public Use
  Company Number: US-ELI_LILLY_AND_COMPANY-US201008006845

PATIENT
  Sex: Female

DRUGS (9)
  1. CYMBALTA [Suspect]
     Indication: FIBROMYALGIA
     Dosage: 120 MG, DAILY (1/D)
  2. NORVASC [Concomitant]
  3. PREVACID [Concomitant]
  4. LOPID [Concomitant]
  5. SYNTHROID [Concomitant]
  6. ASPIRIN [Concomitant]
  7. TYLENOL (CAPLET) [Concomitant]
  8. DELTALIN [Concomitant]
  9. TOPAMAX [Concomitant]

REACTIONS (30)
  - ABDOMINAL PAIN [None]
  - ANGER [None]
  - ARTHRALGIA [None]
  - ATRIAL FIBRILLATION [None]
  - BLISTER [None]
  - BRUXISM [None]
  - DEPRESSED MOOD [None]
  - DIARRHOEA [None]
  - DIZZINESS [None]
  - DRUG WITHDRAWAL HEADACHE [None]
  - DRUG WITHDRAWAL SYNDROME [None]
  - FEELING ABNORMAL [None]
  - FEELING OF DESPAIR [None]
  - FOOD CRAVING [None]
  - INDIFFERENCE [None]
  - INSOMNIA [None]
  - MOOD SWINGS [None]
  - MUSCLE SPASMS [None]
  - MUSCULOSKELETAL STIFFNESS [None]
  - MYALGIA [None]
  - NERVOUS SYSTEM DISORDER [None]
  - PARAESTHESIA [None]
  - PERSONALITY CHANGE [None]
  - PRURITUS [None]
  - PULMONARY HYPERTENSION [None]
  - RESTLESS LEGS SYNDROME [None]
  - SUICIDE ATTEMPT [None]
  - TOOTH FRACTURE [None]
  - VERTIGO [None]
  - WEIGHT INCREASED [None]
